FAERS Safety Report 6499073-4 (Version None)
Quarter: 2009Q4

REPORT INFORMATION
  Report Type: 
  Country: None (occurrence: None)
  Receive Date: 20091127
  Receipt Date: 20081112
  Transmission Date: 20100525
  Serious: Yes (Disabling)
  Sender: FDA-Public Use
  Company Number: WAES 0505USA01007

PATIENT
  Age: 81 Year
  Sex: Female
  Weight: 74.3899 kg

DRUGS (4)
  1. FOSAMAX [Suspect]
     Indication: OSTEOPENIA
     Dosage: 70 MG/WKY/PO
     Route: 048
     Dates: start: 20050511, end: 20060611
  2. FOSAMAX [Suspect]
     Indication: OSTEOPOROSIS
     Dosage: 70 MG/WKY/PO
     Route: 048
     Dates: start: 20050511, end: 20060611
  3. ALEVE (CAPLET) [Concomitant]
  4. NORVASC [Concomitant]

REACTIONS (32)
  - AMNESIA [None]
  - ANXIETY [None]
  - ASTHENIA [None]
  - CHEST PAIN [None]
  - CHILLS [None]
  - DECREASED APPETITE [None]
  - DEPRESSION [None]
  - DIARRHOEA [None]
  - EYE DISORDER [None]
  - FATIGUE [None]
  - FOLLICULITIS [None]
  - HEADACHE [None]
  - HYPERTENSION [None]
  - HYPOAESTHESIA [None]
  - HYPOAESTHESIA ORAL [None]
  - HYPOGEUSIA [None]
  - INFLUENZA LIKE ILLNESS [None]
  - JAW DISORDER [None]
  - NASAL CONGESTION [None]
  - NAUSEA [None]
  - OSTEOARTHRITIS [None]
  - OSTEONECROSIS [None]
  - PHARYNGITIS [None]
  - PHARYNGITIS STREPTOCOCCAL [None]
  - POSTNASAL DRIP [None]
  - PYREXIA [None]
  - RHEUMATOID ARTHRITIS [None]
  - SENSATION OF FOREIGN BODY [None]
  - SKIN LESION [None]
  - SOMNOLENCE [None]
  - TOOTH ABSCESS [None]
  - VULVOVAGINAL MYCOTIC INFECTION [None]
